FAERS Safety Report 23981272 (Version 1)
Quarter: 2024Q2

REPORT INFORMATION
  Report Type: Spontaneous
  Country: GB (occurrence: GB)
  Receive Date: 20240617
  Receipt Date: 20240617
  Transmission Date: 20240716
  Serious: Yes (Death, Other)
  Sender: FDA-Public Use
  Company Number: GB-B.Braun Medical Inc.-2158198

PATIENT
  Age: 10 Year
  Sex: Female

DRUGS (6)
  1. ACETAMINOPHEN [Suspect]
     Active Substance: ACETAMINOPHEN
     Indication: Viral infection
  2. ACETAMINOPHEN [Suspect]
     Active Substance: ACETAMINOPHEN
     Indication: Lower respiratory tract infection
  3. CEFUROXIME [Suspect]
     Active Substance: CEFUROXIME
  4. THYROXINE [Concomitant]
     Active Substance: LEVOTHYROXINE
  5. INSULIN NOS [Concomitant]
     Active Substance: INSULIN NOS
  6. ALBUTEROL [Concomitant]
     Active Substance: ALBUTEROL

REACTIONS (4)
  - Cardiac arrest [Fatal]
  - Off label use [Fatal]
  - Metabolic acidosis [Fatal]
  - Pyroglutamic acidosis [Fatal]
